FAERS Safety Report 5135936-X (Version None)
Quarter: 2006Q4

REPORT INFORMATION
  Report Type: 
  Country: None (occurrence: None)
  Receive Date: 20061020
  Receipt Date: 20061005
  Transmission Date: 20070319
  Serious: Yes (Disabling)
  Sender: FDA-Public Use
  Company Number: TCI2006A03430

PATIENT
  Age: 59 Year
  Sex: Female

DRUGS (5)
  1. ACTOS [Suspect]
     Indication: DIABETES MELLITUS
     Dosage: 15 MG (15 MG, 1 - 2) PER ORAL; SEE IMAGE
     Route: 048
     Dates: start: 20050325, end: 20050701
  2. ACTOS [Suspect]
     Indication: DIABETES MELLITUS
     Dosage: 15 MG (15 MG, 1 - 2) PER ORAL; SEE IMAGE
     Route: 048
     Dates: start: 20050702, end: 20060731
  3. BASEN (VOGLIBOSE) [Concomitant]
  4. LIPITOR [Concomitant]
  5. AMARYL [Concomitant]

REACTIONS (4)
  - BLOOD PRESSURE INCREASED [None]
  - GENERALISED OEDEMA [None]
  - PREDISPOSITION TO DISEASE [None]
  - RENAL FAILURE ACUTE [None]
